FAERS Safety Report 10152551 (Version 1)
Quarter: 2014Q2

REPORT INFORMATION
  Report Type: Spontaneous
  Country: US (occurrence: US)
  Receive Date: 20140505
  Receipt Date: 20140505
  Transmission Date: 20141212
  Serious: No
  Sender: FDA-Public Use
  Company Number: US-BAYER-2014-057758

PATIENT
  Age: 59 Year
  Sex: Male
  Weight: 72.56 kg

DRUGS (1)
  1. ALEVE TABLET [Suspect]
     Indication: BACK PAIN
     Dosage: 2 DF, QD
     Route: 048
     Dates: start: 2009, end: 201404

REACTIONS (3)
  - Hepatic enzyme increased [Not Recovered/Not Resolved]
  - Intentional product misuse [None]
  - Incorrect drug administration duration [None]
